FAERS Safety Report 8839683 (Version 1)
Quarter: 2012Q4

REPORT INFORMATION
  Report Type: 
  Country: BR (occurrence: BR)
  Receive Date: 20121015
  Receipt Date: 20121015
  Transmission Date: 20130627
  Serious: Yes (Hospitalization)
  Sender: FDA-Public Use
  Company Number: BR-ASTRAZENECA-2012SE77357

PATIENT
  Age: 58 Year
  Sex: Female
  Weight: 69 kg

DRUGS (6)
  1. SYMBICORT TURBUHALER [Suspect]
     Indication: ASTHMA
     Dosage: 160/4.5ug once daily
     Route: 055
  2. NEXIUM [Suspect]
     Indication: GASTRITIS
     Route: 048
  3. OMEPRAZOLE [Suspect]
     Indication: GASTRITIS
     Route: 048
  4. CRESTOR [Suspect]
     Indication: HYPERCHOLESTEROLAEMIA
     Route: 048
     Dates: start: 2007
  5. DILACORON [Concomitant]
     Route: 048
     Dates: start: 2002
  6. UNKNOWN [Concomitant]
     Indication: DEPRESSION
     Route: 048
     Dates: start: 2002

REACTIONS (5)
  - Arterial occlusive disease [Recovered/Resolved]
  - Gastritis [Recovering/Resolving]
  - Blood cholesterol increased [Recovering/Resolving]
  - Off label use [Not Recovered/Not Resolved]
  - Drug ineffective [Unknown]
